FAERS Safety Report 20026478 (Version 4)
Quarter: 2022Q3

REPORT INFORMATION
  Report Type: Report from Study
  Country: DE (occurrence: DE)
  Receive Date: 20211102
  Receipt Date: 20220719
  Transmission Date: 20221027
  Serious: Yes (Other)
  Sender: FDA-Public Use
  Company Number: DE-002147023-PHHY2019DE183346

PATIENT
  Sex: Female
  Weight: 66 kg

DRUGS (16)
  1. EXEMESTANE [Suspect]
     Active Substance: EXEMESTANE
     Indication: Breast cancer metastatic
     Dosage: 25 MG, QD
     Route: 048
     Dates: start: 20210609, end: 20210621
  2. KISQALI [Suspect]
     Active Substance: RIBOCICLIB
     Indication: Breast cancer metastatic
     Dosage: 21 DAYS INTAKE, 7 DAYS PAUSE
     Route: 048
     Dates: start: 20190706, end: 20190927
  3. KISQALI [Suspect]
     Active Substance: RIBOCICLIB
     Dosage: QD 21 DAYS INTAKE, 7 DAYS PAUSE
     Route: 048
     Dates: start: 20191004, end: 20191226
  4. KISQALI [Suspect]
     Active Substance: RIBOCICLIB
     Dosage: QD 21 DAYS INTAKE, 7 DAYS PAUSE
     Route: 048
     Dates: start: 20200103, end: 20200521
  5. KISQALI [Suspect]
     Active Substance: RIBOCICLIB
     Dosage: QD 21 DAYS INTAKE, 7 DAYS PAUSE
     Route: 048
     Dates: start: 20200529, end: 20200625
  6. KISQALI [Suspect]
     Active Substance: RIBOCICLIB
     Dosage: QD 21 DAYS INTAKE, 7 DAYS PAUSE
     Route: 048
     Dates: start: 20200703, end: 20200827
  7. KISQALI [Suspect]
     Active Substance: RIBOCICLIB
     Dosage: QD 21 DAYS INTAKE, 7 DAYS PAUSE
     Route: 048
     Dates: start: 20200904, end: 20201002
  8. KISQALI [Suspect]
     Active Substance: RIBOCICLIB
     Dosage: QD 21 DAYS INTAKE, 7 DAYS PAUSE
     Route: 048
     Dates: start: 20201009, end: 20201105
  9. KISQALI [Suspect]
     Active Substance: RIBOCICLIB
     Dosage: QD 21 DAYS INTAKE, 7 DAYS PAUSE
     Route: 048
     Dates: start: 20201113, end: 20201210
  10. KISQALI [Suspect]
     Active Substance: RIBOCICLIB
     Dosage: QD 21 DAYS INTAKE, 7 DAYS PAUSE
     Route: 048
     Dates: start: 20201218, end: 20210114
  11. KISQALI [Suspect]
     Active Substance: RIBOCICLIB
     Dosage: QD 21 DAYS INTAKE, 7 DAYS PAUSE
     Route: 048
     Dates: start: 20210122, end: 20210218
  12. KISQALI [Suspect]
     Active Substance: RIBOCICLIB
     Dosage: QD 21 DAYS INTAKE, 7 DAYS PAUSE
     Route: 048
     Dates: start: 20210226, end: 20210325
  13. KISQALI [Suspect]
     Active Substance: RIBOCICLIB
     Dosage: QD 21 DAYS INTAKE, 7 DAYS PAUSE
     Route: 048
     Dates: start: 20210402, end: 20210429
  14. KISQALI [Suspect]
     Active Substance: RIBOCICLIB
     Dosage: QD 21 DAYS INTAKE, 7 DAYS PAUSE
     Route: 048
     Dates: start: 20210723, end: 20220124
  15. LETROZOLE [Suspect]
     Active Substance: LETROZOLE
     Indication: Breast cancer metastatic
     Dosage: 2.5 MG, QD
     Route: 048
     Dates: start: 20190704, end: 20210608
  16. ANASTROZOLE [Suspect]
     Active Substance: ANASTROZOLE
     Indication: Breast cancer metastatic
     Dosage: 1 MG, QD
     Route: 048
     Dates: start: 20210624, end: 20220124

REACTIONS (13)
  - Erysipelas [Recovered/Resolved]
  - Bone pain [Not Recovered/Not Resolved]
  - Vomiting [Recovered/Resolved]
  - Dyspnoea [Not Recovered/Not Resolved]
  - Diarrhoea [Recovered/Resolved]
  - Nausea [Recovered/Resolved]
  - Arthralgia [Recovered/Resolved]
  - Abdominal pain [Not Recovered/Not Resolved]
  - Lymphoedema [Not Recovered/Not Resolved]
  - Dizziness [Recovered/Resolved]
  - Nausea [Not Recovered/Not Resolved]
  - Fatigue [Not Recovered/Not Resolved]
  - Rosacea [Recovered/Resolved]

NARRATIVE: CASE EVENT DATE: 20190710
